FAERS Safety Report 20632100 (Version 1)
Quarter: 2022Q1

REPORT INFORMATION
  Report Type: Spontaneous
  Country: CN (occurrence: CN)
  Receive Date: 20220324
  Receipt Date: 20220324
  Transmission Date: 20220423
  Serious: Yes (Life-Threatening, Hospitalization)
  Sender: FDA-Public Use
  Company Number: CN-ELI_LILLY_AND_COMPANY-CN202203010242

PATIENT
  Age: 64 Year
  Sex: Male
  Weight: 80 kg

DRUGS (4)
  1. ALIMTA [Suspect]
     Active Substance: PEMETREXED DISODIUM
     Indication: Small cell lung cancer
     Dosage: 800 MG, SINGLE
     Route: 041
     Dates: start: 20220308, end: 20220308
  2. SINTILIMAB [Suspect]
     Active Substance: SINTILIMAB
     Indication: Small cell lung cancer
     Dosage: 20 MG, SINGLE
     Route: 041
     Dates: start: 20220307, end: 20220307
  3. SINTILIMAB [Suspect]
     Active Substance: SINTILIMAB
     Indication: Immunochemotherapy
  4. CISPLATIN [Suspect]
     Active Substance: CISPLATIN
     Indication: Small cell lung cancer
     Dosage: 50 MG, DAILY
     Route: 041
     Dates: start: 20220308, end: 20220310

REACTIONS (2)
  - Myelosuppression [Recovering/Resolving]
  - Off label use [Unknown]

NARRATIVE: CASE EVENT DATE: 20220316
